FAERS Safety Report 7536196-2 (Version None)
Quarter: 2011Q2

REPORT INFORMATION
  Report Type: 
  Country: None (occurrence: None)
  Receive Date: 20110602
  Receipt Date: 20110520
  Transmission Date: 20111010
  Serious: Yes (Death)
  Sender: FDA-Public Use
  Company Number: 2011BN000052

PATIENT
  Age: 46 Year

DRUGS (6)
  1. FLUDARABINE PHOSPHATE [Suspect]
     Indication: BONE MARROW CONDITIONING REGIMEN
     Dosage: 25 MG/M**2;QD;
  2. MYCOPHENOLATE MOFETIL [Suspect]
     Indication: PROPHYLAXIS AGAINST TRANSPLANT REJECTION
  3. CYCLOSPORINE [Concomitant]
  4. MELPHALAN HYDROCHLORIDE [Suspect]
     Indication: BONE MARROW CONDITIONING REGIMEN
     Dosage: 40 MG/M**2; QD;
  5. TACROLIMUS [Suspect]
     Indication: PROPHYLAXIS AGAINST TRANSPLANT REJECTION
  6. ANTI-THYMOCYTE GLOBULIN NOS [Concomitant]

REACTIONS (2)
  - IDIOPATHIC PNEUMONIA SYNDROME [None]
  - PNEUMONIA HERPES VIRAL [None]
